FAERS Safety Report 9808242 (Version 1)
Quarter: 2014Q1

REPORT INFORMATION
  Report Type: Spontaneous
  Country: US (occurrence: US)
  Receive Date: 20140110
  Receipt Date: 20140110
  Transmission Date: 20141002
  Serious: Yes (Other)
  Sender: FDA-Public Use
  Company Number: US-AMGEN-USASP2014000907

PATIENT
  Sex: Female

DRUGS (1)
  1. VECTIBIX [Suspect]
     Indication: COLON CANCER METASTATIC
     Dosage: UNK
     Route: 065

REACTIONS (1)
  - Flatulence [Unknown]
